FAERS Safety Report 12658604 (Version 1)
Quarter: 2016Q3

REPORT INFORMATION
  Report Type: Spontaneous
  Country: US (occurrence: None)
  Receive Date: 20160816
  Receipt Date: 20160816
  Transmission Date: 20161109
  Serious: Yes (Disabling)
  Sender: FDA-Public Use
  Company Number: None

PATIENT
  Age: 78 Year
  Sex: Male
  Weight: 88.45 kg

DRUGS (11)
  1. VITAMIN D3 [Concomitant]
     Active Substance: CHOLECALCIFEROL
  2. CALCIUM [Concomitant]
     Active Substance: CALCIUM
  3. CENTRUM SILVER [Concomitant]
     Active Substance: MINERALS\VITAMINS
  4. OCUVITE [Concomitant]
     Active Substance: VITAMINS
  5. CIPROFLOXACIN. [Suspect]
     Active Substance: CIPROFLOXACIN
     Indication: PROSTATITIS
     Dosage: 1 TABLET(S) TWICE A DAY TAKEN BY MOUTH
     Route: 048
  6. SCHIFF MOVE FREE [Concomitant]
     Active Substance: CHONDROITIN SULFATE A\GLUCOSAMINE
  7. FINASTERIDE. [Concomitant]
     Active Substance: FINASTERIDE
  8. MEGARED [Concomitant]
  9. PROBIOTICS [Concomitant]
     Active Substance: PROBIOTICS NOS
  10. LISINOPRIL. [Concomitant]
     Active Substance: LISINOPRIL
  11. PRESERVISION [Concomitant]
     Active Substance: MINERALS\VITAMINS

REACTIONS (8)
  - Vertigo [None]
  - Dizziness [None]
  - Quality of life decreased [None]
  - Hyperhidrosis [None]
  - Diarrhoea haemorrhagic [None]
  - Inner ear disorder [None]
  - Nausea [None]
  - Asthenia [None]

NARRATIVE: CASE EVENT DATE: 20160724
